FAERS Safety Report 8280302-1 (Version None)
Quarter: 2012Q2

REPORT INFORMATION
  Report Type: 
  Country: None (occurrence: None)
  Receive Date: 20120412
  Receipt Date: 20120109
  Transmission Date: 20120825
  Serious: No
  Sender: FDA-Public Use
  Company Number: US-ASTRAZENECA-2012SE01750

PATIENT
  Sex: Female

DRUGS (4)
  1. TOPROL-XL [Suspect]
     Route: 048
  2. TOPROL-XL [Suspect]
     Route: 048
  3. TOPROL-XL [Suspect]
     Route: 048
  4. NEXIUM [Suspect]
     Route: 048

REACTIONS (4)
  - HAEMANGIOMA [None]
  - CARDIAC DISORDER [None]
  - HYPERTENSION [None]
  - WEIGHT DECREASED [None]
